FAERS Safety Report 5368770-6 (Version None)
Quarter: 2007Q2

REPORT INFORMATION
  Report Type: 
  Country: None (occurrence: None)
  Receive Date: 20070620
  Receipt Date: 20070604
  Transmission Date: 20071010
  Serious: Yes (Other)
  Sender: FDA-Public Use
  Company Number: 2007VX001580

PATIENT
  Age: 68 Year
  Sex: Female
  Weight: 77 kg

DRUGS (2)
  1. FLURAZEPAM HYDROCHLORIDE [Suspect]
     Dosage: 150 MG
     Dates: start: 20070604, end: 20070604
  2. ALCOHOL (ETHANOL) [Suspect]
     Dates: start: 20070604, end: 20070604

REACTIONS (3)
  - ILL-DEFINED DISORDER [None]
  - OVERDOSE [None]
  - SUICIDE ATTEMPT [None]
